FAERS Safety Report 6171009-5 (Version None)
Quarter: 2009Q2

REPORT INFORMATION
  Report Type: 
  Country: None (occurrence: None)
  Receive Date: 20090429
  Receipt Date: 20090423
  Transmission Date: 20091009
  Serious: Yes (Hospitalization)
  Sender: FDA-Public Use
  Company Number: JP-BRISTOL-MYERS SQUIBB COMPANY-14410401

PATIENT
  Age: 56 Year
  Sex: Male
  Weight: 70 kg

DRUGS (4)
  1. ERBITUX [Suspect]
     Indication: RECTAL CANCER
     Dosage: 14OCT08-14OCT08,700MG 1 IN 1 WEEK. STARTED ON 11NOV08.INTERRUPTED ON 11NOV08.RESTARTED ON 18NOV2008.
     Route: 042
     Dates: start: 20081014, end: 20090326
  2. ALLEGRA [Concomitant]
     Route: 065
  3. POLARAMINE [Concomitant]
     Indication: PREMEDICATION
     Dosage: EVERYTIME BEFORE ERBITUX INFUSION.
     Route: 042
  4. DECADRON [Concomitant]
     Indication: PREMEDICATION
     Dosage: EVERYTIME BEFORE ERBITUX INFUSION.
     Route: 042

REACTIONS (2)
  - ORTHOSTATIC HYPOTENSION [None]
  - VOMITING [None]
